FAERS Safety Report 16448866 (Version 1)
Quarter: 2019Q2

REPORT INFORMATION
  Report Type: Spontaneous
  Country: ES (occurrence: ES)
  Receive Date: 20190619
  Receipt Date: 20190619
  Transmission Date: 20190711
  Serious: Yes (Life-Threatening)
  Sender: FDA-Public Use
  Company Number: ES-TEVA-2019-ES-1065355

PATIENT
  Age: 42 Year
  Sex: Male

DRUGS (2)
  1. CLOPIXOL ACUFASE 50 MG/ML SOLUCION INYECTABLE , 1 AMPOLLA DE 1 ML [Suspect]
     Active Substance: ZUCLOPENTHIXOL ACETATE
     Indication: PSYCHOTIC DISORDER
     Route: 048
     Dates: start: 20190417, end: 20190417
  2. RISPERIDONA (7201A) [Suspect]
     Active Substance: RISPERIDONE
     Indication: PSYCHOTIC DISORDER
     Dosage: 1 MILLIGRAM DAILY;
     Route: 048
     Dates: start: 20190417, end: 20190419

REACTIONS (2)
  - Cerebral artery thrombosis [Recovered/Resolved with Sequelae]
  - Coma [Recovered/Resolved with Sequelae]

NARRATIVE: CASE EVENT DATE: 20190419
